FAERS Safety Report 9357277 (Version 1)
Quarter: 2013Q2

REPORT INFORMATION
  Report Type: Spontaneous
  Country: US (occurrence: None)
  Receive Date: 20130617
  Receipt Date: 20130617
  Transmission Date: 20140414
  Serious: Yes (Disabling)
  Sender: FDA-Public Use
  Company Number: A1025523A

PATIENT
  Sex: Female

DRUGS (3)
  1. ORAL MOISTURISERS MOUTHWASH (ORAL MOISTURISERS) [Suspect]
     Indication: PRODUCT USED FOR UNKNOWN INDICATION
     Route: 004
  2. ORAL MOISTURISERS MOUTHWASH [Suspect]
     Indication: PRODUCT USED FOR UNKNOWN INDICATION
     Route: 004
  3. SODIUM FLUORIDE TOOTHPASTE (SODIUM FLUORIDE) [Suspect]
     Indication: PRODUCT USED FOR UNKNOWN INDICATION
     Route: 004

REACTIONS (7)
  - Tooth infection [None]
  - Sepsis [None]
  - Cardiac disorder [None]
  - General physical health deterioration [None]
  - Feeling abnormal [None]
  - Malaise [None]
  - Cardiac disorder [None]
